FAERS Safety Report 8784939 (Version 1)
Quarter: 2012Q4

REPORT INFORMATION
  Report Type: Spontaneous
  Country: US (occurrence: None)
  Receive Date: 20120907
  Receipt Date: 20120907
  Transmission Date: 20130627
  Serious: Yes (Other)
  Sender: FDA-Public Use
  Company Number: None

PATIENT
  Age: 45 Year
  Sex: Male
  Weight: 70.31 kg

DRUGS (1)
  1. OMEPRAZOLE [Suspect]
     Indication: GERD
     Route: 048
     Dates: start: 20120601, end: 20120810

REACTIONS (3)
  - Throat tightness [None]
  - Dysphagia [None]
  - Chest discomfort [None]
